FAERS Safety Report 20999034 (Version 2)
Quarter: 2022Q3

REPORT INFORMATION
  Report Type: Spontaneous
  Country: FR (occurrence: FR)
  Receive Date: 20220623
  Receipt Date: 20220712
  Transmission Date: 20221027
  Serious: Yes (Death, Other)
  Sender: FDA-Public Use
  Company Number: FR-OTSUKA-2022_033184

PATIENT
  Sex: Male

DRUGS (4)
  1. ARIPIPRAZOLE [Suspect]
     Active Substance: ARIPIPRAZOLE
     Indication: Schizophrenia
     Dosage: 30 MG, QD
     Route: 065
  2. ARIPIPRAZOLE [Suspect]
     Active Substance: ARIPIPRAZOLE
     Dosage: 225 MG OF ARIPIPRAZOLE DURING THE 3 DAYS
     Route: 065
  3. RISPERIDONE [Concomitant]
     Active Substance: RISPERIDONE
     Indication: Schizophrenia
     Dosage: GRADUALLY INCREASED TO 6  MG/DAY
     Route: 065
  4. RISPERIDONE [Concomitant]
     Active Substance: RISPERIDONE
     Dosage: 12  MG/DAY
     Route: 065

REACTIONS (6)
  - Completed suicide [Fatal]
  - Psychotic symptom [Fatal]
  - Symptom recurrence [Unknown]
  - Anxiety [Unknown]
  - Drug ineffective [Fatal]
  - Overdose [Unknown]
